FAERS Safety Report 8807518 (Version 1)
Quarter: 2012Q4

REPORT INFORMATION
  Report Type: 
  Country: GB (occurrence: GB)
  Receive Date: 20120925
  Receipt Date: 20120925
  Transmission Date: 20130627
  Serious: Yes (Other)
  Sender: FDA-Public Use
  Company Number: GB-PFIZER INC-2012231881

PATIENT
  Sex: Male

DRUGS (1)
  1. DEPO-MEDRONE [Suspect]
     Dosage: 120 mg, weekly
     Route: 030

REACTIONS (1)
  - Hyperthyroidism [Unknown]
